FAERS Safety Report 25222800 (Version 1)
Quarter: 2025Q2

REPORT INFORMATION
  Report Type: Report from Study
  Country: US (occurrence: US)
  Receive Date: 20250422
  Receipt Date: 20250422
  Transmission Date: 20250716
  Serious: Yes (Other)
  Sender: BIOGEN
  Company Number: US-BIOGEN-2025BI01308035

PATIENT
  Sex: Female

DRUGS (1)
  1. VUMERITY [Suspect]
     Active Substance: DIROXIMEL FUMARATE
     Indication: Multiple sclerosis
     Route: 050
     Dates: start: 20250312, end: 20250326

REACTIONS (10)
  - Suicidal ideation [Recovered/Resolved]
  - Malaise [Unknown]
  - Depressed mood [Recovered/Resolved]
  - Fatigue [Unknown]
  - Cystitis [Unknown]
  - Sinusitis [Recovered/Resolved]
  - Oral herpes [Unknown]
  - Stress [Recovered/Resolved]
  - Multiple sclerosis relapse [Unknown]
  - Abdominal pain upper [Unknown]
